FAERS Safety Report 4661778-5 (Version None)
Quarter: 2005Q2

REPORT INFORMATION
  Report Type: 
  Country: None (occurrence: None)
  Receive Date: 20050512
  Receipt Date: 20050512
  Transmission Date: 20051028
  Serious: Yes (Hospitalization)
  Sender: FDA-Public Use
  Company Number: None

PATIENT
  Age: 74 Year
  Sex: Male
  Weight: 89 kg

DRUGS (7)
  1. HEPARIN [Suspect]
     Dosage: TITRATE
  2. DIGOXIN [Concomitant]
  3. ALTACE [Concomitant]
  4. HYDROHLOROTHROZIDE [Concomitant]
  5. PEPCID [Concomitant]
  6. COUMADIN [Concomitant]
  7. LOPRESSOR [Concomitant]

REACTIONS (1)
  - MUSCLE HAEMORRHAGE [None]
